FAERS Safety Report 19723757 (Version 2)
Quarter: 2021Q3

REPORT INFORMATION
  Report Type: Spontaneous
  Country: ID (occurrence: ID)
  Receive Date: 20210819
  Receipt Date: 20210827
  Transmission Date: 20211014
  Serious: Yes (Other)
  Sender: FDA-Public Use
  Company Number: ID-PURDUE-USA-2021-0282187

PATIENT
  Age: 64 Year
  Sex: Male

DRUGS (2)
  1. PARACETAMOL [Concomitant]
     Active Substance: ACETAMINOPHEN
     Dosage: UNK
     Dates: start: 20210724, end: 20210811
  2. OXYNEO [Suspect]
     Active Substance: OXYCODONE
     Indication: CANCER PAIN
     Dosage: 15 MG, Q12H
     Route: 048
     Dates: start: 20210724, end: 20210810

REACTIONS (1)
  - Myoclonus [Recovered/Resolved]

NARRATIVE: CASE EVENT DATE: 20210810
